FAERS Safety Report 18670012 (Version 1)
Quarter: 2020Q4

REPORT INFORMATION
  Report Type: Spontaneous
  Country: UA (occurrence: UA)
  Receive Date: 20201228
  Receipt Date: 20201228
  Transmission Date: 20210114
  Serious: Yes (Death, Other)
  Sender: FDA-Public Use
  Company Number: UA-TAKEDA-2020TUS060466

PATIENT

DRUGS (1)
  1. ICLUSIG [Suspect]
     Active Substance: PONATINIB
     Indication: CHRONIC MYELOID LEUKAEMIA
     Dosage: 30 MILLIGRAM
     Route: 048

REACTIONS (4)
  - Pyrexia [Unknown]
  - Cerebrovascular accident [Fatal]
  - COVID-19 [Unknown]
  - Malaise [Unknown]
